FAERS Safety Report 22116053 (Version 1)
Quarter: 2023Q1

REPORT INFORMATION
  Report Type: Spontaneous
  Country: NL (occurrence: NL)
  Receive Date: 20230320
  Receipt Date: 20230320
  Transmission Date: 20230417
  Serious: Yes (Life-Threatening, Hospitalization)
  Sender: FDA-Public Use
  Company Number: None

PATIENT
  Sex: Male

DRUGS (3)
  1. PHENYTOIN [Suspect]
     Active Substance: PHENYTOIN
     Indication: Status epilepticus
     Dosage: 1 DOSAGE FORM (600MG IN 100ML NACL)
     Route: 065
     Dates: start: 20200602, end: 20200602
  2. CARBASPIRIN [Concomitant]
     Active Substance: CARBASPIRIN
     Dosage: POWDER IN SACHET
     Route: 065
  3. MIDAZOLAM HYDROCHLORIDE [Concomitant]
     Active Substance: MIDAZOLAM HYDROCHLORIDE
     Dosage: 6 MILLIGRAM (6MG INTRAMUSCULARLY)
     Route: 030

REACTIONS (3)
  - Atrial fibrillation [Recovered/Resolved]
  - Hypotension [Recovered/Resolved]
  - Bradycardia [Recovered/Resolved]
